FAERS Safety Report 8031868-8 (Version None)
Quarter: 2012Q1

REPORT INFORMATION
  Report Type: 
  Country: None (occurrence: None)
  Receive Date: 20120109
  Receipt Date: 20120105
  Transmission Date: 20120608
  Serious: Yes (Life-Threatening, Disabling, Other)
  Sender: FDA-Public Use
  Company Number: GB-ASTRAZENECA-2011SE66198

PATIENT
  Age: 22 Year
  Sex: Male

DRUGS (3)
  1. DEPAKOTE [Concomitant]
     Indication: BIPOLAR DISORDER
     Route: 048
  2. SEROQUEL XR [Suspect]
     Indication: BIPOLAR I DISORDER
     Route: 048
     Dates: start: 20110926, end: 20111011
  3. SEROQUEL XR [Suspect]
     Indication: OBSESSIVE-COMPULSIVE DISORDER
     Route: 048
     Dates: start: 20110926, end: 20111011

REACTIONS (3)
  - PENILE HAEMORRHAGE [None]
  - PAINFUL ERECTION [None]
  - ERECTION INCREASED [None]
